FAERS Safety Report 6928135 (Version 2)
Quarter: 2020Q3

REPORT INFORMATION
  Report Type: Report from Study
  Country: KR (occurrence: KR)
  Receive Date: 20090305
  Receipt Date: 20090427
  Transmission Date: 20201104
  Serious: Yes (Hospitalization)
  Sender: FDA-Public Use
  Company Number: KR-WYE-H08395609

PATIENT
  Age: 72 Year
  Sex: Female
  Weight: 53.3 kg

DRUGS (11)
  1. AMLODIPINE [Concomitant]
     Active Substance: AMLODIPINE BESYLATE
     Indication: HYPERTENSION
     Dosage: NOT PROVIDED
     Route: 065
     Dates: start: 20090223, end: 20090315
  2. URSO 250 [Concomitant]
     Active Substance: URSODIOL
     Indication: ASPARTATE AMINOTRANSFERASE INCREASED
     Dosage: NOT PROVIDED
     Route: 065
     Dates: start: 20090223, end: 20090228
  3. PROCATEROL HYDROCHLORIDE [Concomitant]
     Active Substance: PROCATEROL HYDROCHLORIDE
     Indication: ASTHMA
     Dosage: NOT PROVIDED
     Route: 065
     Dates: start: 20090224, end: 20090315
  4. FLUDARABINE [Suspect]
     Active Substance: FLUDARABINE PHOSPHATE
     Indication: B-CELL LYMPHOMA
     Dosage: 25 MG/M^2 ON DAY 2?4
     Route: 042
     Dates: start: 20080808, end: 20090223
  5. MITOXANTRONE HYDROCHLORIDE. [Suspect]
     Active Substance: MITOXANTRONE HYDROCHLORIDE
     Indication: B-CELL LYMPHOMA
     Dosage: 10 MG/M^2 ON DAY 2
     Route: 042
     Dates: start: 20080808, end: 20090223
  6. DEXAMETHASONE. [Suspect]
     Active Substance: DEXAMETHASONE
     Indication: B-CELL LYMPHOMA
     Dosage: 20 MG/DAY ON DAY 1?5
     Route: 048
     Dates: start: 20080808, end: 20090223
  7. OMEPRAZOLE. [Concomitant]
     Active Substance: OMEPRAZOLE
     Indication: GASTRIC ULCER
     Dosage: NOT PROVIDED
     Route: 065
     Dates: start: 20090220, end: 20090321
  8. SINGULAIR [Concomitant]
     Active Substance: MONTELUKAST SODIUM
     Indication: ASTHMA
     Dosage: NOT PROVIDED
     Route: 065
     Dates: start: 20090224, end: 20090315
  9. RITUXAN [Suspect]
     Active Substance: RITUXIMAB
     Indication: B-CELL LYMPHOMA
     Dosage: 375 MG/M^2 ON DAY 1
     Route: 042
     Dates: start: 20080808, end: 20090223
  10. TEVETEN [Concomitant]
     Active Substance: EPROSARTAN MESYLATE
     Indication: HYPERTENSION
     Dosage: NOT PROVIDED
     Route: 065
     Dates: start: 20090224, end: 20090321
  11. CODEINE [Concomitant]
     Active Substance: CODEINE
     Indication: COUGH
     Dosage: NOT PROVIDED
     Route: 065
     Dates: start: 20090221, end: 20090321

REACTIONS (1)
  - Pneumonia [Recovered/Resolved]

NARRATIVE: CASE EVENT DATE: 20090225
